FAERS Safety Report 17615539 (Version 1)
Quarter: 2020Q2

REPORT INFORMATION
  Report Type: Report from Study
  Country: IN (occurrence: IN)
  Receive Date: 20200402
  Receipt Date: 20200402
  Transmission Date: 20200713
  Serious: Yes (Death)
  Sender: FDA-Public Use
  Company Number: PHHY2018IN198349

PATIENT
  Age: 60 Year
  Sex: Male

DRUGS (2)
  1. VYMADA [Suspect]
     Active Substance: SACUBITRIL\VALSARTAN
     Indication: CARDIAC FAILURE CHRONIC
     Dosage: 200 MG, BID
     Route: 048
     Dates: start: 20181226
  2. VYMADA [Suspect]
     Active Substance: SACUBITRIL\VALSARTAN
     Dosage: 0.25 DF (1/4TH PORTION OF 200MG), BID
     Route: 048

REACTIONS (3)
  - Wrong technique in product usage process [Not Recovered/Not Resolved]
  - Multiple organ dysfunction syndrome [Fatal]
  - Cardiac arrest [Fatal]
